FAERS Safety Report 14824483 (Version 1)
Quarter: 2018Q2

REPORT INFORMATION
  Report Type: Spontaneous
  Country: US (occurrence: US)
  Receive Date: 20180429
  Receipt Date: 20180429
  Transmission Date: 20180711
  Serious: Yes (Other)
  Sender: FDA-Public Use
  Company Number: US-ANIPHARMA-2017-US-014927

PATIENT
  Age: 74 Year
  Sex: Female
  Weight: 87.54 kg

DRUGS (2)
  1. SOTALOL. [Suspect]
     Active Substance: SOTALOL
  2. INDERAL LA [Suspect]
     Active Substance: PROPRANOLOL HYDROCHLORIDE
     Dates: start: 1962, end: 201711

REACTIONS (2)
  - Arrhythmia [Unknown]
  - Dizziness [Recovered/Resolved]

NARRATIVE: CASE EVENT DATE: 201703
